FAERS Safety Report 5924913-4 (Version None)
Quarter: 2008Q4

REPORT INFORMATION
  Report Type: 
  Country: None (occurrence: None)
  Receive Date: 20081017
  Receipt Date: 20081017
  Transmission Date: 20090506
  Serious: Yes (Other)
  Sender: FDA-Public Use
  Company Number: None

PATIENT
  Age: 29 Year
  Sex: Female
  Weight: 99.7913 kg

DRUGS (1)
  1. LYRICA [Suspect]
     Indication: FIBROMYALGIA
     Dosage: 75 MG 2 X DAILY PO
     Route: 048
     Dates: start: 20081010, end: 20081016

REACTIONS (2)
  - FEAR [None]
  - MOVEMENT DISORDER [None]
